FAERS Safety Report 4332620-7 (Version None)
Quarter: 2004Q2

REPORT INFORMATION
  Report Type: 
  Country: None (occurrence: None)
  Receive Date: 20040401
  Receipt Date: 20010330
  Transmission Date: 20050107
  Serious: Yes (Hospitalization)
  Sender: FDA-Public Use
  Company Number: 2004205118JP

PATIENT
  Age: 55 Year
  Sex: Female

DRUGS (14)
  1. MEDROL [Suspect]
     Indication: IMMUNOSUPPRESSION
     Dosage: 12 MG, QD, ORAL; SEE IMAGE
     Route: 048
     Dates: end: 19980101
  2. MEDROL [Suspect]
     Indication: IMMUNOSUPPRESSION
     Dosage: 12 MG, QD, ORAL; SEE IMAGE
     Route: 048
     Dates: start: 19980101
  3. DELTA-CORTEF [Suspect]
     Indication: IMMUNOSUPPRESSION
     Dosage: 45 MG, QD,; SEE IMAGE
     Dates: end: 19980101
  4. DELTA-CORTEF [Suspect]
     Indication: IMMUNOSUPPRESSION
     Dosage: 45 MG, QD,; SEE IMAGE
     Dates: start: 19980101
  5. NILVADIPINE (NILVADIPINE) [Concomitant]
  6. ECABET MONSODIUM (ECABET MONOSODIUM) [Concomitant]
  7. ALFACALCIDOL (ALFACALCIDOL) [Concomitant]
  8. MECOBALAMINE (MECOBALAMIN) [Concomitant]
  9. URSODEOXYCHOLIC ACID [Concomitant]
  10. CARBAZOCHROME SODIUM SULFONATE (CARBAZOCHROME SODIUM SULFONATE) [Concomitant]
  11. ASCORBIC ACID/PANTOTHENIC ACID [Concomitant]
  12. CIMETIDINE HCL [Concomitant]
  13. ISOPHANE INSULIN [Concomitant]
  14. NEUTRAL INSULIN INJECTION (INSULIN) [Concomitant]

REACTIONS (6)
  - CRYPTOCOCCAL CUTANEOUS INFECTION [None]
  - DRUG INEFFECTIVE [None]
  - NEOPLASM SKIN [None]
  - PAIN [None]
  - PANNICULITIS [None]
  - PLATELET COUNT DECREASED [None]
